FAERS Safety Report 7025278-X (Version None)
Quarter: 2010Q4

REPORT INFORMATION
  Report Type: 
  Country: None (occurrence: None)
  Receive Date: 20101001
  Receipt Date: 20100923
  Transmission Date: 20110411
  Serious: Yes (Other)
  Sender: FDA-Public Use
  Company Number: US-PFIZER INC-2010121914

PATIENT
  Sex: Female

DRUGS (4)
  1. CHANTIX [Suspect]
     Indication: SMOKING CESSATION THERAPY
     Dosage: 0.5 MG, 1X/DAY
     Route: 048
     Dates: start: 20100902
  2. CHANTIX [Suspect]
     Dosage: 1 MG, 2X/DAY
  3. RADIOACTIVE IODINE SOLUTION [Concomitant]
     Indication: THYROID DISORDER
     Dosage: UNK
  4. ZOLOFT [Concomitant]
     Dosage: 100 MG, UNK

REACTIONS (1)
  - NERVOUSNESS [None]
